FAERS Safety Report 7937053-X (Version None)
Quarter: 2011Q4

REPORT INFORMATION
  Report Type: 
  Country: None (occurrence: None)
  Receive Date: 20111123
  Receipt Date: 20111110
  Transmission Date: 20120403
  Serious: Yes (Death)
  Sender: FDA-Public Use
  Company Number: JP-ROCHE-793275

PATIENT
  Sex: Female

DRUGS (9)
  1. TOPOTECAN [Suspect]
     Indication: COLON CANCER METASTATIC
     Route: 042
     Dates: start: 20110215, end: 20110405
  2. AVASTIN [Suspect]
     Indication: COLON CANCER METASTATIC
     Route: 042
     Dates: start: 20100805, end: 20110405
  3. ISOVORIN [Concomitant]
     Route: 041
     Dates: start: 20100705, end: 20101105
  4. ISOVORIN [Concomitant]
     Route: 041
     Dates: start: 20101101, end: 20110101
  5. FLUOROURACIL [Concomitant]
     Route: 042
     Dates: start: 20100705, end: 20101101
  6. FLUOROURACIL [Concomitant]
     Route: 042
     Dates: start: 20110215, end: 20110401
  7. ISOVORIN [Concomitant]
     Route: 041
     Dates: start: 20110215, end: 20110405
  8. FLUOROURACIL [Concomitant]
     Route: 042
     Dates: start: 20101101, end: 20110101
  9. OXALIPLATIN [Suspect]
     Indication: COLON CANCER METASTATIC
     Route: 042
     Dates: start: 20100705, end: 20101105

REACTIONS (3)
  - ABDOMINAL PAIN LOWER [None]
  - CARDIO-RESPIRATORY ARREST [None]
  - INFUSION RELATED REACTION [None]
